FAERS Safety Report 19767902 (Version 1)
Quarter: 2021Q3

REPORT INFORMATION
  Report Type: Spontaneous
  Country: US (occurrence: US)
  Receive Date: 20210830
  Receipt Date: 20210830
  Transmission Date: 20211014
  Serious: Yes (Other)
  Sender: FDA-Public Use
  Company Number: US-PFM-2021-05882

PATIENT
  Sex: Female
  Weight: 7 kg

DRUGS (1)
  1. HEMANGEOL [Suspect]
     Active Substance: PROPRANOLOL HYDROCHLORIDE
     Indication: HAEMANGIOMA
     Dosage: 2.4 ML, BID (2/DAY)
     Route: 048

REACTIONS (1)
  - Perinephric collection [Not Recovered/Not Resolved]
